FAERS Safety Report 24113481 (Version 1)
Quarter: 2024Q3

REPORT INFORMATION
  Report Type: Report from Study
  Country: US (occurrence: US)
  Receive Date: 20240720
  Receipt Date: 20240720
  Transmission Date: 20241016
  Serious: Yes (Hospitalization, Other)
  Sender: NOVARTIS
  Company Number: US-002147023-NVSC2024US146932

PATIENT
  Age: 55 Year
  Sex: Female
  Weight: 72.57 kg

DRUGS (1)
  1. KISQALI [Suspect]
     Active Substance: RIBOCICLIB
     Indication: Breast cancer metastatic
     Dosage: 600 MG, QD
     Route: 048
     Dates: start: 202310

REACTIONS (11)
  - Toxicity to various agents [Unknown]
  - Immobile [Unknown]
  - Hemiparesis [Unknown]
  - Cough [Unknown]
  - Nausea [Recovered/Resolved]
  - Neuralgia [Unknown]
  - Lymphadenopathy [Unknown]
  - Pain in extremity [Unknown]
  - Muscle tightness [Unknown]
  - Motion sickness [Unknown]
  - Feeling of body temperature change [Unknown]

NARRATIVE: CASE EVENT DATE: 20231001
